FAERS Safety Report 17578862 (Version 1)
Quarter: 2020Q1

REPORT INFORMATION
  Report Type: Spontaneous
  Country: US (occurrence: US)
  Receive Date: 20200325
  Receipt Date: 20200325
  Transmission Date: 20200409
  Serious: No
  Sender: FDA-Public Use
  Company Number: NVSC2020US081281

PATIENT
  Sex: Female

DRUGS (5)
  1. LENVIMA [Suspect]
     Active Substance: LENVATINIB
     Indication: RENAL CANCER
     Dosage: 14 MG, QD
     Route: 048
     Dates: start: 20200219
  2. AFINITOR [Suspect]
     Active Substance: EVEROLIMUS
     Indication: RENAL CANCER
     Dosage: UNK
     Route: 065
     Dates: start: 20200219
  3. ALLEGRA [Concomitant]
     Active Substance: FEXOFENADINE HYDROCHLORIDE
     Indication: RASH
     Dosage: 90 MG, BID
     Route: 065
  4. CARMEX [Concomitant]
     Active Substance: CAMPHOR\MENTHOL\PHENOL\POTASSIUM ALUM\SALICYLIC ACID
     Indication: BLISTER
     Dosage: UNK
     Route: 065
  5. ALLEGRA [Concomitant]
     Active Substance: FEXOFENADINE HYDROCHLORIDE
     Indication: PRURITUS

REACTIONS (5)
  - Decreased appetite [Not Recovered/Not Resolved]
  - Asthenia [Not Recovered/Not Resolved]
  - Blister [Recovering/Resolving]
  - Rash [Recovered/Resolved]
  - Pruritus [Recovered/Resolved]
